FAERS Safety Report 7064764-3 (Version None)
Quarter: 2010Q4

REPORT INFORMATION
  Report Type: 
  Country: None (occurrence: None)
  Receive Date: 20101027
  Receipt Date: 19770504
  Transmission Date: 20110411
  Serious: Yes (Death)
  Sender: FDA-Public Use
  Company Number: DE-ROCHE-770306702002

PATIENT
  Age: 64 Year
  Sex: Male

DRUGS (7)
  1. VALIUM [Suspect]
     Indication: PRODUCT USED FOR UNKNOWN INDICATION
     Route: 030
  2. BACTRIM [Suspect]
     Indication: LOWER RESPIRATORY TRACT INFECTION
     Route: 042
  3. LANITOP [Concomitant]
     Route: 042
  4. LASIX [Concomitant]
     Route: 042
  5. EUPHYLLIN [Concomitant]
     Route: 042
  6. BISOLVON [Concomitant]
     Route: 042
  7. BRONCHOSPASMIN [Concomitant]
     Route: 048

REACTIONS (2)
  - CARDIOPULMONARY FAILURE [None]
  - NAUSEA [None]
